FAERS Safety Report 17359468 (Version 1)
Quarter: 2020Q1

REPORT INFORMATION
  Report Type: Spontaneous
  Country: US (occurrence: US)
  Receive Date: 20200203
  Receipt Date: 20200203
  Transmission Date: 20200409
  Serious: Yes (Other)
  Sender: FDA-Public Use
  Company Number: US-SA-2020SA023665

PATIENT
  Age: 53 Year
  Sex: Male

DRUGS (1)
  1. FABRAZYME [Suspect]
     Active Substance: AGALSIDASE BETA
     Route: 041

REACTIONS (7)
  - Weight decreased [Unknown]
  - Gastrointestinal carcinoma [Unknown]
  - Tooth loss [Unknown]
  - Unevaluable event [Unknown]
  - Depression [Unknown]
  - Vomiting [Unknown]
  - End stage renal disease [Unknown]
